FAERS Safety Report 20924603 (Version 2)
Quarter: 2022Q2

REPORT INFORMATION
  Report Type: Spontaneous
  Country: JP (occurrence: JP)
  Receive Date: 20220607
  Receipt Date: 20220618
  Transmission Date: 20220720
  Serious: Yes (Hospitalization, Other)
  Sender: FDA-Public Use
  Company Number: JP-ASTRAZENECA-220030968_070810_P_1

PATIENT
  Age: 1 Month
  Sex: Male

DRUGS (4)
  1. SYNAGIS [Suspect]
     Active Substance: PALIVIZUMAB
     Indication: Antiviral prophylaxis
     Dosage: DOSE UNKNOWN?PALIVIZUMAB(GENETICAL RECOMBINATION):50MG
     Route: 030
     Dates: start: 202205, end: 202205
  2. SYNAGIS [Suspect]
     Active Substance: PALIVIZUMAB
     Dosage: DOSE UNKNOWN?PALIVIZUMAB(GENETICAL RECOMBINATION):50MG
     Route: 030
     Dates: start: 202206
  3. INCREMIN [Concomitant]
     Dosage: DOSE UNKNOWN
     Route: 065
  4. CARBOCYSTEINE [Concomitant]
     Active Substance: CARBOCYSTEINE
     Dosage: DOSE UNKNOWN
     Route: 065

REACTIONS (2)
  - Respiratory syncytial virus infection [Recovered/Resolved]
  - Infantile apnoea [Recovered/Resolved]

NARRATIVE: CASE EVENT DATE: 20220501
